FAERS Safety Report 22524927 (Version 2)
Quarter: 2025Q2

REPORT INFORMATION
  Report Type: Report from Study
  Country: US (occurrence: US)
  Receive Date: 20230606
  Receipt Date: 20250613
  Transmission Date: 20250717
  Serious: Yes (Other)
  Sender: ROCHE
  Company Number: US-ROCHE-3361284

PATIENT
  Age: 64 Year
  Sex: Female

DRUGS (1)
  1. ALECENSA [Suspect]
     Active Substance: ALECTINIB HYDROCHLORIDE
     Indication: Neoplasm
     Dosage: TAKE 2 CAPSULE(S) BY MOUTH TWICE A DAY. THE MAXIMUM DAILY DOSE IS 600MG
     Route: 048

REACTIONS (3)
  - Off label use [Unknown]
  - Brain neoplasm malignant [Unknown]
  - Memory impairment [Unknown]
